FAERS Safety Report 15223150 (Version 1)
Quarter: 2018Q3

REPORT INFORMATION
  Report Type: Spontaneous
  Country: US (occurrence: US)
  Receive Date: 20180731
  Receipt Date: 20180731
  Transmission Date: 20181010
  Serious: Yes (Other)
  Sender: FDA-Public Use
  Company Number: US-ENDO PHARMACEUTICALS INC-2018-021318

PATIENT
  Sex: Male
  Weight: 81.63 kg

DRUGS (1)
  1. TESTOPEL [Suspect]
     Active Substance: TESTOSTERONE
     Indication: BLOOD TESTOSTERONE DECREASED
     Dosage: 750 MG, (10 PELLETS) INSERTED INTO UPPER BUTTOCK, APPROXIMATELY EVERY 5?6 MONTHS.
     Route: 058

REACTIONS (5)
  - Prescribed overdose [Recovered/Resolved]
  - Unevaluable event [Unknown]
  - Balance disorder [Unknown]
  - Dizziness [Unknown]
  - Implant site infection [Unknown]
